FAERS Safety Report 13988023 (Version 2)
Quarter: 2017Q4

REPORT INFORMATION
  Report Type: Spontaneous
  Country: AU (occurrence: AU)
  Receive Date: 20170919
  Receipt Date: 20171020
  Transmission Date: 20180321
  Serious: Yes (Death, Hospitalization)
  Sender: FDA-Public Use
  Company Number: AU-CELGENEUS-AUS-20170801571

PATIENT
  Sex: Female

DRUGS (2)
  1. THALIDOMIDE [Suspect]
     Active Substance: THALIDOMIDE
     Indication: ATAXIA TELANGIECTASIA
     Route: 048
     Dates: start: 20170727
  2. THALIDOMIDE [Suspect]
     Active Substance: THALIDOMIDE
     Indication: OFF LABEL USE

REACTIONS (1)
  - Pneumonia [Fatal]
